FAERS Safety Report 19084587 (Version 1)
Quarter: 2021Q2

REPORT INFORMATION
  Report Type: Spontaneous
  Country: US (occurrence: US)
  Receive Date: 20210401
  Receipt Date: 20210401
  Transmission Date: 20210717
  Serious: No
  Sender: FDA-Public Use
  Company Number: US-IBSA PHARMA-2019-IBS-00789

PATIENT
  Age: 51 Year
  Weight: 88 kg

DRUGS (7)
  1. FLECTOR [Suspect]
     Active Substance: DICLOFENAC EPOLAMINE
     Indication: INFLAMMATION
     Dosage: 3 DOSAGE FORM, OD
     Route: 061
  2. FLECTOR [Suspect]
     Active Substance: DICLOFENAC EPOLAMINE
     Dosage: UNK
     Route: 061
  3. FLECTOR [Suspect]
     Active Substance: DICLOFENAC EPOLAMINE
     Indication: PAIN
     Dosage: 4 DOSAGE FORM, OD
     Route: 061
     Dates: start: 2003
  4. VICODIN [Concomitant]
     Active Substance: ACETAMINOPHEN\HYDROCODONE BITARTRATE
  5. NORCO [Concomitant]
     Active Substance: ACETAMINOPHEN\HYDROCODONE BITARTRATE
  6. FLECTOR [Suspect]
     Active Substance: DICLOFENAC EPOLAMINE
     Dosage: ONE PATCH EVERY 12 HOURS
     Route: 061
  7. PERCOCET                           /00446701/ [Concomitant]
     Active Substance: ACETAMINOPHEN\OXYCODONE HYDROCHLORIDE\OXYCODONE TEREPHTHALATE

REACTIONS (15)
  - Therapeutic product effect incomplete [Unknown]
  - Expired product administered [Unknown]
  - Off label use [Unknown]
  - Weight fluctuation [Unknown]
  - Muscle spasms [Unknown]
  - Product use in unapproved indication [Unknown]
  - Cerebral disorder [Unknown]
  - Drug effective for unapproved indication [Unknown]
  - Dysgraphia [Unknown]
  - Application site rash [Unknown]
  - Condition aggravated [Not Recovered/Not Resolved]
  - Tremor [Unknown]
  - Panic attack [Unknown]
  - Palpitations [Unknown]
  - Loss of personal independence in daily activities [Not Recovered/Not Resolved]

NARRATIVE: CASE EVENT DATE: 20190604
